FAERS Safety Report 15234894 (Version 1)
Quarter: 2018Q4

REPORT INFORMATION
  Report Type: Spontaneous
  Country: US (occurrence: US)
  Receive Date: 20180803
  Receipt Date: 20180803
  Transmission Date: 20190204
  Serious: Yes (Other)
  Sender: FDA-Public Use
  Company Number: US-ACCORD-064572

PATIENT
  Age: 55 Year
  Sex: Female
  Weight: 111.13 kg

DRUGS (6)
  1. TIMOLOL. [Concomitant]
     Active Substance: TIMOLOL
  2. TAMOXIFEN [Concomitant]
     Active Substance: TAMOXIFEN
     Dates: start: 200912, end: 2013
  3. ANASTROZOLE. [Concomitant]
     Active Substance: ANASTROZOLE
  4. SALBUTAMOL [Concomitant]
     Active Substance: ALBUTEROL
  5. DOCETAXEL ACCORD [Suspect]
     Active Substance: DOCETAXEL
     Indication: BREAST CANCER
     Dosage: NUMBER OF CYCLES: 04
     Dates: start: 20130326, end: 201307
  6. CYCLOPHOSPHAMIDE/CYCLOPHOSPHAMIDE MONOHYDRATE [Suspect]
     Active Substance: CYCLOPHOSPHAMIDE
     Indication: BREAST CANCER
     Dosage: NUMBER OF CYCLES: 04

REACTIONS (1)
  - Alopecia [Not Recovered/Not Resolved]

NARRATIVE: CASE EVENT DATE: 201312
